FAERS Safety Report 8354503-8 (Version None)
Quarter: 2012Q2

REPORT INFORMATION
  Report Type: 
  Country: None (occurrence: None)
  Receive Date: 20120511
  Receipt Date: 20120429
  Transmission Date: 20120825
  Serious: Yes (Other)
  Sender: FDA-Public Use
  Company Number: LU-AMGEN-LUXSP2012020383

PATIENT
  Age: 46 Year
  Sex: Female
  Weight: 78 kg

DRUGS (5)
  1. ENBREL [Suspect]
     Indication: ANKYLOSING SPONDYLITIS
     Dosage: 50 MG, WEEKLY
     Route: 058
     Dates: start: 20100805, end: 20101001
  2. FOLAVIT [Concomitant]
     Dosage: 4 MG, WEEKLY
     Route: 048
     Dates: start: 20080721
  3. ARCOXIA [Concomitant]
     Dosage: 90 MG, 1X/DAY
     Route: 048
     Dates: start: 20070918
  4. METHOTREXATE [Concomitant]
     Dosage: 15 MG, WEEKLY
     Route: 048
     Dates: start: 20080721
  5. NEXIUM [Concomitant]
     Dosage: 20 MG, 1X/DAY
     Route: 048
     Dates: start: 20080403

REACTIONS (5)
  - PULMONARY ALVEOLAR HAEMORRHAGE [None]
  - HAEMOPTYSIS [None]
  - PYREXIA [None]
  - GENERAL PHYSICAL HEALTH DETERIORATION [None]
  - ASTHENIA [None]
